FAERS Safety Report 18668187 (Version 1)
Quarter: 2020Q4

REPORT INFORMATION
  Report Type: Spontaneous
  Country: US (occurrence: US)
  Receive Date: 20201228
  Receipt Date: 20201228
  Transmission Date: 20210114
  Serious: No
  Sender: FDA-Public Use
  Company Number: US-SA-2020SA371078

PATIENT

DRUGS (1)
  1. DUPIXENT [Suspect]
     Active Substance: DUPILUMAB
     Dosage: 300 MG
     Route: 058
     Dates: start: 20200327

REACTIONS (3)
  - COVID-19 [Unknown]
  - SARS-CoV-2 test positive [Unknown]
  - Conjunctivitis [Unknown]

NARRATIVE: CASE EVENT DATE: 202012
